FAERS Safety Report 6879637-6 (Version None)
Quarter: 2010Q3

REPORT INFORMATION
  Report Type: 
  Country: None (occurrence: None)
  Receive Date: 20100728
  Receipt Date: 20090806
  Transmission Date: 20110219
  Serious: No
  Sender: FDA-Public Use
  Company Number: US-MYLANLABS-2009S1014046

PATIENT
  Sex: Female

DRUGS (2)
  1. CLONIDINE HYDROCHLORIDE [Suspect]
     Indication: BLOOD PRESSURE
     Route: 048
  2. HYDROCHLOROTHIAZIDE [Suspect]
     Indication: BLOOD PRESSURE
     Route: 048

REACTIONS (3)
  - BLOOD PRESSURE INCREASED [None]
  - DRUG INEFFECTIVE [None]
  - HEADACHE [None]
